FAERS Safety Report 11394592 (Version 1)
Quarter: 2015Q3

REPORT INFORMATION
  Report Type: Spontaneous
  Country: US (occurrence: US)
  Receive Date: 20150819
  Receipt Date: 20150819
  Transmission Date: 20151125
  Serious: Yes (Other)
  Sender: FDA-Public Use
  Company Number: US-BEH-2015052513

PATIENT
  Sex: Female
  Weight: 94 kg

DRUGS (35)
  1. HIZENTRA [Suspect]
     Active Substance: HUMAN IMMUNOGLOBULIN G
     Dosage: 10 GM 50 ML VIAL
     Route: 058
  2. CYMBALTA [Concomitant]
     Active Substance: DULOXETINE HYDROCHLORIDE
  3. PROTONIX [Concomitant]
     Active Substance: PANTOPRAZOLE SODIUM
  4. SPIRIVA [Concomitant]
     Active Substance: TIOTROPIUM BROMIDE MONOHYDRATE
  5. VITAMIN D3 [Concomitant]
     Active Substance: CHOLECALCIFEROL
  6. ACETAMINOPHEN. [Concomitant]
     Active Substance: ACETAMINOPHEN
  7. LIDOCAINE. [Concomitant]
     Active Substance: LIDOCAINE
  8. HIZENTRA [Suspect]
     Active Substance: HUMAN IMMUNOGLOBULIN G
     Indication: IMMUNODEFICIENCY COMMON VARIABLE
     Dosage: 10 GM 50 ML VIAL
     Route: 058
  9. TIZANIDINE. [Concomitant]
     Active Substance: TIZANIDINE
  10. ALBUTEROL. [Concomitant]
     Active Substance: ALBUTEROL
  11. CLARITIN [Concomitant]
     Active Substance: LORATADINE
  12. EPIPEN [Concomitant]
     Active Substance: EPINEPHRINE
     Indication: ANAPHYLACTIC REACTION
  13. HIZENTRA [Suspect]
     Active Substance: HUMAN IMMUNOGLOBULIN G
     Dosage: 2 GM 10 ML VIAL
     Route: 058
  14. VENTOLIN [Concomitant]
     Active Substance: ALBUTEROL SULFATE
  15. GRALISE [Concomitant]
     Active Substance: GABAPENTIN
  16. GUAIFENESIN. [Concomitant]
     Active Substance: GUAIFENESIN
  17. CYPROHEPTADINE. [Concomitant]
     Active Substance: CYPROHEPTADINE
  18. LISINOPRIL. [Concomitant]
     Active Substance: LISINOPRIL
  19. LIDOCAINE/PRILOCAINE [Concomitant]
     Dosage: 1 APP
     Route: 061
  20. VITAMIN D [Concomitant]
     Active Substance: CHOLECALCIFEROL
  21. ADVAIR HFA [Concomitant]
     Active Substance: FLUTICASONE PROPIONATE\SALMETEROL XINAFOATE
  22. CRESTOR [Concomitant]
     Active Substance: ROSUVASTATIN CALCIUM
  23. ASPIRIN. [Concomitant]
     Active Substance: ASPIRIN
  24. FLUCONAZOLE. [Concomitant]
     Active Substance: FLUCONAZOLE
  25. SODIUM CHLORIDE. [Concomitant]
     Active Substance: SODIUM CHLORIDE
  26. METHYLPREDNISOLONE. [Concomitant]
     Active Substance: METHYLPREDNISOLONE
     Dosage: AS DIRECTED
     Route: 048
  27. HIZENTRA [Suspect]
     Active Substance: HUMAN IMMUNOGLOBULIN G
     Dosage: 2 GM 10 ML VIAL
     Route: 058
  28. MAXALT [Concomitant]
     Active Substance: RIZATRIPTAN BENZOATE
  29. BUMETANIDE. [Concomitant]
     Active Substance: BUMETANIDE
  30. RESTORIL [Concomitant]
     Active Substance: TEMAZEPAM
  31. DIPHENHYDRAMINE. [Concomitant]
     Active Substance: DIPHENHYDRAMINE
  32. PATADAY [Concomitant]
     Active Substance: OLOPATADINE HYDROCHLORIDE
  33. WARFARIN [Concomitant]
     Active Substance: WARFARIN
  34. KEFLEX [Concomitant]
     Active Substance: CEPHALEXIN
  35. PERCOCET [Concomitant]
     Active Substance: ACETAMINOPHEN\OXYCODONE HYDROCHLORIDE

REACTIONS (3)
  - Cellulitis [Unknown]
  - Headache [Unknown]
  - Migraine [Unknown]
